FAERS Safety Report 6644279-4 (Version None)
Quarter: 2010Q1

REPORT INFORMATION
  Report Type: 
  Country: None (occurrence: None)
  Receive Date: 20100304
  Receipt Date: 20090616
  Transmission Date: 20100710
  Serious: Yes (Hospitalization)
  Sender: FDA-Public Use
  Company Number: US-003010

PATIENT
  Age: 47 Year
  Sex: Female
  Weight: 129 kg

DRUGS (21)
  1. ISOVUE-M 300 [Suspect]
     Indication: DIAGNOSTIC PROCEDURE
     Dosage: 2ML QD EPIDURAL
     Route: 008
     Dates: start: 20090603, end: 20090603
  2. ISOVUE-M 300 [Suspect]
     Indication: PAIN
     Dosage: 2ML QD EPIDURAL
     Route: 008
     Dates: start: 20090603, end: 20090603
  3. KENALOG-40 [Suspect]
     Indication: INJECTION
     Dosage: 2ML QD EPIDURAL
     Route: 008
     Dates: start: 20090603, end: 20090603
  4. KENALOG-40 [Suspect]
     Indication: PAIN
     Dosage: 2ML QD EPIDURAL
     Route: 008
     Dates: start: 20090603, end: 20090603
  5. LIDOCAINE [Concomitant]
  6. ASPIRIN [Concomitant]
  7. ACTOS [Concomitant]
  8. LITHIUM CARBONATE [Concomitant]
  9. LYRICA [Concomitant]
  10. NAMENDA [Concomitant]
  11. SIMVASTATIN (SIIMVASTATIN) [Concomitant]
  12. LASIX [Concomitant]
  13. LISINOPRIL [Concomitant]
  14. METOPROLOL (METOPROLOL) [Concomitant]
  15. BUPIVACAINE (BUPIVACAINE HYDROCHLORIDE) [Concomitant]
  16. MAGNESIUM OXIDE (MAGNESIUM OXIDE) [Concomitant]
  17. ATIVAN [Concomitant]
  18. LEXAPRO [Concomitant]
  19. SINGULAIR [Concomitant]
  20. ISOSORBIDE (ISOSORBIDE) [Concomitant]
  21. POTASSIUM CHLORIDE [Concomitant]

REACTIONS (2)
  - DISORIENTATION [None]
  - HYPOAESTHESIA [None]
